FAERS Safety Report 14437190 (Version 1)
Quarter: 2018Q1

REPORT INFORMATION
  Report Type: Spontaneous
  Country: US (occurrence: US)
  Receive Date: 20180125
  Receipt Date: 20180125
  Transmission Date: 20180509
  Serious: Yes (Life-Threatening)
  Sender: FDA-Public Use
  Company Number: None

PATIENT
  Age: 55 Year
  Sex: Female
  Weight: 58.5 kg

DRUGS (7)
  1. UTOPIC [Suspect]
     Active Substance: UREA
     Indication: KERATOSIS PILARIS
     Route: 061
     Dates: start: 20180123, end: 20180123
  2. WELLBUTRIN [Concomitant]
     Active Substance: BUPROPION HYDROCHLORIDE
  3. SPIRONOLACTONE. [Concomitant]
     Active Substance: SPIRONOLACTONE
  4. DUTASTERIDE. [Concomitant]
     Active Substance: DUTASTERIDE
  5. UTOPIC [Suspect]
     Active Substance: UREA
     Indication: DRY SKIN
     Route: 061
     Dates: start: 20180123, end: 20180123
  6. SYNTHROID [Concomitant]
     Active Substance: LEVOTHYROXINE SODIUM
  7. VITAMIN D3 [Concomitant]
     Active Substance: CHOLECALCIFEROL

REACTIONS (10)
  - Erythema [None]
  - Throat tightness [None]
  - Rash [None]
  - Speech disorder [None]
  - Feeling hot [None]
  - Rash generalised [None]
  - Anaphylactic reaction [None]
  - Nausea [None]
  - Peripheral swelling [None]
  - Chest discomfort [None]

NARRATIVE: CASE EVENT DATE: 20180123
